FAERS Safety Report 9698976 (Version 2)
Quarter: 2013Q4

REPORT INFORMATION
  Report Type: Spontaneous
  Country: US (occurrence: US)
  Receive Date: 20131120
  Receipt Date: 20131224
  Transmission Date: 20140711
  Serious: Yes (Other)
  Sender: FDA-Public Use
  Company Number: 2013SP003370

PATIENT
  Age: 29 Year
  Sex: Female
  Weight: 63 kg

DRUGS (1)
  1. LUNESTA [Suspect]
     Indication: POOR QUALITY SLEEP
     Route: 048
     Dates: start: 20130804, end: 20130804

REACTIONS (2)
  - Grand mal convulsion [Recovered/Resolved]
  - Dehydration [Unknown]
